FAERS Safety Report 16728316 (Version 1)
Quarter: 2019Q3

REPORT INFORMATION
  Report Type: Spontaneous
  Country: US (occurrence: US)
  Receive Date: 20190822
  Receipt Date: 20190822
  Transmission Date: 20191005
  Serious: No
  Sender: FDA-Public Use
  Company Number: US-GLAXOSMITHKLINE-US2019148333

PATIENT
  Age: 17 Year
  Sex: Female

DRUGS (1)
  1. FLONASE SENSIMIST ALLERGY RELIEF [Suspect]
     Active Substance: FLUTICASONE FUROATE
     Indication: HYPERSENSITIVITY
     Dosage: UNK, QD
     Route: 045
     Dates: start: 201908

REACTIONS (6)
  - Inappropriate schedule of product administration [Unknown]
  - Nausea [Unknown]
  - Malaise [Unknown]
  - Eating disorder [Unknown]
  - Retching [Unknown]
  - Dizziness [Unknown]

NARRATIVE: CASE EVENT DATE: 20190810
